FAERS Safety Report 6555657-6 (Version None)
Quarter: 2010Q1

REPORT INFORMATION
  Report Type: 
  Country: None (occurrence: None)
  Receive Date: 20100128
  Receipt Date: 20100115
  Transmission Date: 20100710
  Serious: Yes (Other)
  Sender: FDA-Public Use
  Company Number: PHEH2009US08361

PATIENT
  Sex: Female
  Weight: 62.132 kg

DRUGS (11)
  1. RECLAST [Suspect]
     Indication: OSTEOPOROSIS
     Dosage: 5MG, Q YEAR
     Route: 042
     Dates: start: 20080601, end: 20080601
  2. METOPROLOL [Concomitant]
     Dosage: 200 MG, UNK
  3. LISINOPRIL [Concomitant]
     Indication: HYPERTENSION
     Dosage: 50 MG, QD
  4. SIMVASTATIN [Concomitant]
     Indication: HYPERCHOLESTEROLAEMIA
     Dosage: 40 MG, QD
  5. BABY ASPIRIN [Concomitant]
  6. CALCIUM [Concomitant]
  7. MULTI-VITAMINS [Concomitant]
  8. VICODIN ES [Concomitant]
     Indication: PAIN
     Dosage: UNK
  9. TYLENOL PM, EXTRA STRENGTH [Concomitant]
     Indication: PAIN
     Dosage: UNK
     Route: 048
  10. TOPROL-XL [Concomitant]
     Indication: HYPERTENSION
  11. LEXAPRO [Concomitant]
     Indication: DEPRESSION
     Dosage: 20 MG, UNK

REACTIONS (13)
  - ARTIFICIAL CROWN PROCEDURE [None]
  - BONE DISORDER [None]
  - DENTAL IMPLANTATION [None]
  - DEVICE BREAKAGE [None]
  - MOUTH ULCERATION [None]
  - MUSCULOSKELETAL DISCOMFORT [None]
  - ORAL PAIN [None]
  - ORAL SURGERY [None]
  - OSTEONECROSIS [None]
  - PAIN IN JAW [None]
  - TOOTH EXTRACTION [None]
  - TOOTH FRACTURE [None]
  - TOOTH INFECTION [None]
